FAERS Safety Report 12404878 (Version 1)
Quarter: 2016Q2

REPORT INFORMATION
  Report Type: Spontaneous
  Country: US (occurrence: US)
  Receive Date: 20160525
  Receipt Date: 20160525
  Transmission Date: 20160815
  Serious: No
  Sender: FDA-Public Use
  Company Number: US-GREER LABORATORIES, INC.-1052814

PATIENT
  Age: 51 Year
  Sex: Female
  Weight: 113.18 kg

DRUGS (18)
  1. STANDARDIZED BERMUDA GRASS [Suspect]
     Active Substance: CYNODON DACTYLON POLLEN
     Route: 058
  2. CAT HAIR, STANDARDIZED [Suspect]
     Active Substance: FELIS CATUS HAIR
     Route: 058
  3. POLLENS - TREES, SYCAMORE, AMERICAN (EASTERN) PLATANUS OCCIDENTALLIS [Suspect]
     Active Substance: PLATANUS OCCIDENTALIS POLLEN
     Route: 058
  4. STERILE DILUENT FOR ALLERGENIC EXTRACT (ALBUMIN (HUMAN)\PHENOL) [Suspect]
     Active Substance: ALBUMIN HUMAN\PHENOL
     Route: 058
  5. POLLENS - TREES, PECAN CARYA CARYA ILLINOENSIS [Suspect]
     Active Substance: CARYA ILLINOINENSIS POLLEN
     Route: 058
  6. POLLENS - TREES, ELM, AMERICAN ULMUS AMERICANA [Suspect]
     Active Substance: ULMUS AMERICANA POLLEN
     Route: 058
  7. ALLERGENIC EXTRACTS STANDARDIZED MITE (DERMATOPHAGOIDES PTERONYSSINUS) [Suspect]
     Active Substance: DERMATOPHAGOIDES PTERONYSSINUS
     Route: 058
  8. ALTERNARIA ALTERNATA. [Suspect]
     Active Substance: ALTERNARIA ALTERNATA
     Route: 058
  9. POLLENS - WEEDS AND GARDEN PLANTS, LAMB QUARTERS CHENOPODIUM ALBUM [Suspect]
     Active Substance: CHENOPODIUM ALBUM POLLEN
     Route: 058
  10. POLLENS - TREES, PRIVET LIGUSTRUM VULGARE [Suspect]
     Active Substance: LIGUSTRUM VULGARE POLLEN
     Route: 058
  11. POLLENS - GRASSES, BAHIA GRASS PASPALUM NOTATUM [Suspect]
     Active Substance: PASPALUM NOTATUM POLLEN
     Route: 058
  12. ALLERGENIC EXTRACT- MITE, DERMATOPHAGOIDES FARINAE [Suspect]
     Active Substance: DERMATOPHAGOIDES FARINAE
     Indication: RHINITIS ALLERGIC
     Route: 058
  13. POLLENS - WEEDS AND GARDEN PLANTS, RAGWEED, MIXED AMBROSIA [Suspect]
     Active Substance: AMBROSIA ARTEMISIIFOLIA POLLEN\AMBROSIA TRIFIDA POLLEN
     Route: 058
  14. INSECTS (WHOLE BODY) COCKROACH MIX [Suspect]
     Active Substance: BLATELLA GERMANICA\PERIPLANETA AMERICANA
     Route: 058
  15. POLLENS - GRASSES, JOHNSON GRASS SORGHUM HALEPENSE [Suspect]
     Active Substance: SORGHUM HALEPENSE POLLEN
     Route: 058
  16. POLLENS - WEEDS AND GARDEN PLANTS, MARSHELDER, TRUE/ROUGH, IVA ANNUA [Suspect]
     Active Substance: IVA ANNUA POLLEN
     Route: 058
  17. POLLENS - TREES, MAPLE, SOFT, ACER SACCHARINUM [Suspect]
     Active Substance: ACER SACCHARINUM POLLEN
     Route: 058
  18. ALLERGENIC EXTRACT- RYEGRASS, PERENNIAL LOLIUM PERENNE [Suspect]
     Active Substance: LOLIUM PERENNE POLLEN
     Route: 058

REACTIONS (3)
  - Wheezing [Recovered/Resolved]
  - Urticaria [Recovered/Resolved]
  - Local reaction [Recovered/Resolved]

NARRATIVE: CASE EVENT DATE: 20160517
